FAERS Safety Report 8866640 (Version 1)
Quarter: 2012Q4

REPORT INFORMATION
  Report Type: 
  Country: US (occurrence: US)
  Receive Date: 20121025
  Receipt Date: 20121025
  Transmission Date: 20130627
  Serious: No
  Sender: FDA-Public Use
  Company Number: US-AMGEN-USASP2012012948

PATIENT
  Age: 38 Year
  Sex: Female
  Weight: 54.42 kg

DRUGS (3)
  1. ENBREL [Suspect]
     Indication: PRODUCT USED FOR UNKNOWN INDICATION
     Dosage: 50 mg, qwk
     Route: 058
  2. CALCIUM [Concomitant]
     Dosage: UNK
  3. SULFASALAZIN [Concomitant]
     Dosage: 500 mg, UNK

REACTIONS (2)
  - Glossodynia [Unknown]
  - Oral pain [Unknown]
